FAERS Safety Report 7609701-5 (Version None)
Quarter: 2011Q3

REPORT INFORMATION
  Report Type: 
  Country: None (occurrence: None)
  Receive Date: 20110714
  Receipt Date: 20110706
  Transmission Date: 20111222
  Serious: Yes (Other)
  Sender: FDA-Public Use
  Company Number: US-GENZYME-CAMP-1001733

PATIENT
  Age: 7 Month
  Sex: Male

DRUGS (2)
  1. CAMPATH [Suspect]
     Dosage: 0.2 MG/KG, X 3 DOSES
     Route: 065
  2. CAMPATH [Suspect]
     Indication: AUTOIMMUNE LYMPHOPROLIFERATIVE SYNDROME
     Dosage: 0.1 MG/KG, QOD X 3 DOSES
     Route: 065

REACTIONS (6)
  - CAPILLARY LEAK SYNDROME [None]
  - TACHYCARDIA [None]
  - HYPOXIA [None]
  - HYPOTENSION [None]
  - TUMOUR LYSIS SYNDROME [None]
  - PYREXIA [None]
